FAERS Safety Report 9795320 (Version 2)
Quarter: 2014Q1

REPORT INFORMATION
  Report Type: Spontaneous
  Country: US (occurrence: US)
  Receive Date: 20140103
  Receipt Date: 20140103
  Transmission Date: 20141002
  Serious: Yes (Other)
  Sender: FDA-Public Use
  Company Number: US-AMGEN-USASP2010010598

PATIENT
  Age: 57 Year
  Sex: Female
  Weight: 53.97 kg

DRUGS (4)
  1. ENBREL [Suspect]
     Indication: RHEUMATOID ARTHRITIS
     Dosage: 50 MG, QWK
     Route: 058
  2. CALCIUM [Concomitant]
     Dosage: 500 UNK, UNK
     Route: 048
  3. AMLODIPINE [Concomitant]
     Dosage: 2.5 MG, UNK
  4. VITAMIN D                          /00107901/ [Concomitant]
     Dosage: 1000 UNIT, UNK

REACTIONS (5)
  - Thyroid disorder [Unknown]
  - Alopecia [Unknown]
  - Drug ineffective [Unknown]
  - Osteoporosis [Unknown]
  - Arthralgia [Unknown]
